FAERS Safety Report 8932480 (Version 1)
Quarter: 2012Q4

REPORT INFORMATION
  Report Type: Spontaneous
  Country: US (occurrence: None)
  Receive Date: 20121126
  Receipt Date: 20121126
  Transmission Date: 20130627
  Serious: No
  Sender: FDA-Public Use
  Company Number: None

PATIENT
  Age: 71 Year
  Sex: Female

DRUGS (10)
  1. AMITRIPTYLINE 100 MG QUALITEST [Suspect]
     Indication: FIBROMYALGIA
     Dosage: every bedtime
     Route: 048
     Dates: start: 20120921, end: 20121116
  2. AMITRIPTYLINE 100 MG QUALITEST [Suspect]
     Indication: HEADACHE/PROPHYLAXIS
     Dosage: every bedtime
     Route: 048
     Dates: start: 20120921, end: 20121116
  3. BUSPIRONE [Concomitant]
  4. FLUOXETINE [Concomitant]
  5. POTASSIUM CHLORIDE [Concomitant]
  6. METOPROLOL ER [Concomitant]
  7. LOVASTATIN [Concomitant]
  8. TRIAMTERENE /HYDROCHLOROTHIAZIDE [Concomitant]
  9. OMEPRAZOLE [Concomitant]
  10. VERAPAMIL [Concomitant]

REACTIONS (3)
  - Headache [None]
  - Nocturia [None]
  - Product substitution issue [None]
